FAERS Safety Report 4951296-9 (Version None)
Quarter: 2006Q1

REPORT INFORMATION
  Report Type: 
  Country: None (occurrence: None)
  Receive Date: 20060317
  Receipt Date: 20060310
  Transmission Date: 20060701
  Serious: Yes (Death)
  Sender: FDA-Public Use
  Company Number: MEDI-0004222

PATIENT
  Age: 2 Month
  Sex: Male
  Weight: 3.23 kg

DRUGS (2)
  1. SYNAGIS [Suspect]
     Indication: ANTIVIRAL PROPHYLAXIS
     Dosage: 48 MG, 1 IN 30 D, INTRAMUSCULAR
     Route: 030
     Dates: start: 20051017, end: 20051122
  2. SYNAGIS [Suspect]
     Indication: ANTIVIRAL PROPHYLAXIS
     Dosage: 48 MG, 1 IN 30 D, INTRAMUSCULAR
     Route: 030
     Dates: start: 20051017

REACTIONS (3)
  - INTUSSUSCEPTION [None]
  - NASOPHARYNGITIS [None]
  - RESPIRATORY SYNCYTIAL VIRUS INFECTION [None]
